FAERS Safety Report 5314813-5 (Version None)
Quarter: 2007Q2

REPORT INFORMATION
  Report Type: 
  Country: None (occurrence: None)
  Receive Date: 20070427
  Receipt Date: 20070416
  Transmission Date: 20071010
  Serious: Yes (Hospitalization)
  Sender: FDA-Public Use
  Company Number: SPV1-2007-02151

PATIENT
  Age: 74 Year
  Sex: Male

DRUGS (5)
  1. CARBAMAZEPINE [Suspect]
     Indication: NEURALGIA
  2. EPROSARTAN (EPROSARTAN) [Concomitant]
  3. PRAVASTATIN [Concomitant]
  4. ZOLPIDEM TARTRATE [Concomitant]
  5. TERAZOSIN HCL [Concomitant]

REACTIONS (5)
  - ATRIAL FIBRILLATION [None]
  - CRYPTOGENIC ORGANISING PNEUMONIA [None]
  - PLEURAL EFFUSION [None]
  - RESPIRATORY DISTRESS [None]
  - TRANSAMINASES INCREASED [None]
